FAERS Safety Report 6437017-1 (Version None)
Quarter: 2009Q4

REPORT INFORMATION
  Report Type: 
  Country: None (occurrence: None)
  Receive Date: 20091112
  Receipt Date: 20091030
  Transmission Date: 20100525
  Serious: Yes (Hospitalization)
  Sender: FDA-Public Use
  Company Number: US-BAYER-200920705NA

PATIENT
  Age: 47 Year
  Sex: Female

DRUGS (2)
  1. BETASERON [Suspect]
     Indication: RELAPSING-REMITTING MULTIPLE SCLEROSIS
     Dates: start: 20020401, end: 20070625
  2. AVONEX [Concomitant]

REACTIONS (4)
  - FALL [None]
  - INFLUENZA LIKE ILLNESS [None]
  - MULTIPLE SCLEROSIS [None]
  - UPPER LIMB FRACTURE [None]
